FAERS Safety Report 26082599 (Version 1)
Quarter: 2025Q4

REPORT INFORMATION
  Report Type: Spontaneous
  Country: US (occurrence: None)
  Receive Date: 20251121
  Receipt Date: 20251121
  Transmission Date: 20260117
  Serious: Yes (Other)
  Sender: FDA-CTU
  Company Number: None

PATIENT
  Sex: Male

DRUGS (11)
  1. TALTZ [Suspect]
     Active Substance: IXEKIZUMAB
     Indication: Psoriasis
     Dosage: FREQUENCY : MONTHLY;?
     Route: 058
     Dates: start: 20240206
  2. BUSPIRONE [Concomitant]
     Active Substance: BUSPIRONE HYDROCHLORIDE
  3. CLONAZEPAM TAB2MG [Concomitant]
  4. DEPAKOTE TAB 250MG DR [Concomitant]
  5. FOLIC ACID TAB S00MCG [Concomitant]
  6. LISINOPRIL TAB 2.5MG [Concomitant]
  7. METHOTREXATE [Concomitant]
     Active Substance: METHOTREXATE
  8. PROZAC CAP 20MG [Concomitant]
  9. SULFASALAZIN TAB 500MG DR [Concomitant]
  10. TALTZ [Concomitant]
     Active Substance: IXEKIZUMAB
  11. ZOLOFT TAB 50MG [Concomitant]

REACTIONS (1)
  - Nephrolithiasis [None]
